FAERS Safety Report 5213704-8 (Version None)
Quarter: 2007Q1

REPORT INFORMATION
  Report Type: 
  Country: None (occurrence: None)
  Receive Date: 20070119
  Receipt Date: 20070109
  Transmission Date: 20070707
  Serious: Yes (Hospitalization)
  Sender: FDA-Public Use
  Company Number: JP-PFIZER INC-2007003206

PATIENT
  Age: 79 Year
  Sex: Male

DRUGS (1)
  1. GABAPEN [Suspect]
     Indication: POST HERPETIC NEURALGIA
     Dosage: DAILY DOSE:600MG
     Route: 048
     Dates: start: 20061218, end: 20061220

REACTIONS (3)
  - FACE OEDEMA [None]
  - PRURITUS [None]
  - TOXIC SKIN ERUPTION [None]
